FAERS Safety Report 5007596-X (Version None)
Quarter: 2006Q2

REPORT INFORMATION
  Report Type: 
  Country: None (occurrence: None)
  Receive Date: 20060522
  Receipt Date: 20060508
  Transmission Date: 20061013
  Serious: Yes (Hospitalization)
  Sender: FDA-Public Use
  Company Number: TW-MERCK-0605TWN00010

PATIENT
  Age: 57 Year
  Sex: Male

DRUGS (4)
  1. COZAAR [Suspect]
     Route: 048
  2. CARVEDILOL [Concomitant]
     Route: 065
  3. CAPTOPRIL [Concomitant]
     Route: 065
  4. FUROSEMIDE [Concomitant]
     Route: 065

REACTIONS (3)
  - BUNDLE BRANCH BLOCK LEFT [None]
  - CARDIAC FAILURE CONGESTIVE [None]
  - CONDITION AGGRAVATED [None]
